FAERS Safety Report 15539732 (Version 1)
Quarter: 2018Q4

REPORT INFORMATION
  Report Type: Other
  Country: BE (occurrence: BE)
  Receive Date: 20181023
  Receipt Date: 20181023
  Transmission Date: 20190205
  Serious: Yes (Life-Threatening)
  Sender: FDA-Public Use
  Company Number: BE-CELLTRION INC.-2018BE023213

PATIENT

DRUGS (3)
  1. INFLIXIMAB (UNKNOWN) [Suspect]
     Active Substance: INFLIXIMAB
     Indication: PRODUCT USED FOR UNKNOWN INDICATION
     Dosage: 500 MG, 8 WEEK
     Route: 042
     Dates: start: 201705, end: 201705
  2. METHOTREXATE. [Suspect]
     Active Substance: METHOTREXATE
     Indication: PRODUCT USED FOR UNKNOWN INDICATION
     Dosage: 15 MG, 1 WEEK
     Route: 048
     Dates: start: 201603, end: 20180830
  3. INFLIXIMAB (UNKNOWN) [Suspect]
     Active Substance: INFLIXIMAB
     Dosage: 500 MG, 8 WEEK
     Route: 042
     Dates: start: 20180830, end: 20180830

REACTIONS (1)
  - Non-Hodgkin^s lymphoma stage IV [Recovering/Resolving]

NARRATIVE: CASE EVENT DATE: 20180830
